FAERS Safety Report 11088561 (Version 1)
Quarter: 2015Q2

REPORT INFORMATION
  Report Type: Spontaneous
  Country: US (occurrence: US)
  Receive Date: 20150504
  Receipt Date: 20150504
  Transmission Date: 20150821
  Serious: Yes (Hospitalization, Other)
  Sender: FDA-Public Use
  Company Number: US-ELI_LILLY_AND_COMPANY-US201504008643

PATIENT
  Age: 34 Year
  Sex: Female

DRUGS (5)
  1. PROZAC [Suspect]
     Active Substance: FLUOXETINE HYDROCHLORIDE
     Indication: MAJOR DEPRESSION
     Dosage: 20MG, DAILY ORAL
     Route: 048
     Dates: start: 20090923
  2. ONDANSETRON [Concomitant]
     Active Substance: ONDANSETRON
     Dosage: 8MG, (.5 OR 1TAB BID).
     Route: 048
  3. CM PROMETHAZINE [Concomitant]
     Dosage: 25MG, QID
     Route: 048
  4. OMEPRAZOLE. [Concomitant]
     Active Substance: OMEPRAZOLE
     Dosage: 20MG, DAILY
     Route: 048
  5. AZITHROMYCIN [Concomitant]
     Active Substance: AZITHROMYCIN ANHYDROUS
     Dosage: 250 MG
     Route: 048

REACTIONS (3)
  - Pre-eclampsia [Unknown]
  - Exposure during pregnancy [Unknown]
  - Breech presentation [Unknown]

NARRATIVE: CASE EVENT DATE: 20110725
